FAERS Safety Report 9897526 (Version 2)
Quarter: 2014Q1

REPORT INFORMATION
  Report Type: Spontaneous
  Country: ES (occurrence: ES)
  Receive Date: 20140214
  Receipt Date: 20140310
  Transmission Date: 20141002
  Serious: Yes (Death, Hospitalization)
  Sender: FDA-Public Use
  Company Number: ES-VERTEX PHARMACEUTICALS INC-2014-000765

PATIENT
  Sex: Male

DRUGS (7)
  1. INCIVO [Suspect]
     Indication: HEPATITIS C
     Dates: start: 20120312, end: 20120530
  2. PEG INTERFERON [Suspect]
     Indication: HEPATITIS C
     Dates: start: 20120312, end: 20120530
  3. RIBAVIRIN [Suspect]
     Indication: HEPATITIS C
     Dates: start: 20120312, end: 20120530
  4. AZATHIOPRINE [Concomitant]
  5. PREDNISONE [Concomitant]
  6. CYCLOSPORIN [Concomitant]
  7. EPOETIN ALFA [Concomitant]

REACTIONS (8)
  - Pneumonia [Fatal]
  - Acute respiratory failure [Fatal]
  - Histiocytosis haematophagic [Fatal]
  - Disseminated tuberculosis [Fatal]
  - Asthenia [Unknown]
  - Cough [Unknown]
  - Pyrexia [Unknown]
  - Rash [Unknown]
